FAERS Safety Report 8603609-4 (Version None)
Quarter: 2012Q3

REPORT INFORMATION
  Report Type: 
  Country: None (occurrence: None)
  Receive Date: 20120817
  Receipt Date: 20120813
  Transmission Date: 20120928
  Serious: Yes (Death)
  Sender: FDA-Public Use
  Company Number: US-ASTRAZENECA-2012SE57392

PATIENT
  Age: 58 Year
  Sex: Male

DRUGS (3)
  1. MORPHINE [Concomitant]
  2. OXYGEN [Concomitant]
  3. SYMBICORT [Suspect]
     Dosage: FREQUENCY UNKNOWN
     Route: 055

REACTIONS (1)
  - DEATH [None]
